FAERS Safety Report 4683380-1 (Version None)
Quarter: 2005Q2

REPORT INFORMATION
  Report Type: 
  Country: None (occurrence: None)
  Receive Date: 20050602
  Receipt Date: 20050407
  Transmission Date: 20051028
  Serious: No
  Sender: FDA-Public Use
  Company Number: 200510696BWH

PATIENT
  Age: 33 Year
  Sex: Male

DRUGS (4)
  1. LEVITRA [Suspect]
     Dosage: 20 MG, ONCE, ORAL
     Route: 048
     Dates: start: 20050406
  2. SYNTHROID [Concomitant]
  3. DILANTIN [Concomitant]
  4. ZYPREXA [Concomitant]

REACTIONS (1)
  - DRUG INEFFECTIVE [None]
